FAERS Safety Report 5157524-1 (Version None)
Quarter: 2006Q4

REPORT INFORMATION
  Report Type: 
  Country: None (occurrence: None)
  Receive Date: 20061127
  Receipt Date: 20061106
  Transmission Date: 20070319
  Serious: Yes (Hospitalization)
  Sender: FDA-Public Use
  Company Number: FR-GLAXOSMITHKLINE-B0445501A

PATIENT
  Age: 51 Year
  Sex: Female
  Weight: 74 kg

DRUGS (3)
  1. SERETIDE [Suspect]
     Indication: ASTHMA
     Route: 055
     Dates: start: 20060801, end: 20061019
  2. KALETRA [Suspect]
     Indication: HIV INFECTION
     Dosage: 4UNIT PER DAY
     Route: 048
     Dates: start: 20060215
  3. TRUVADA [Concomitant]
     Indication: HIV INFECTION
     Dosage: 1UNIT PER DAY
     Route: 048
     Dates: start: 20060215

REACTIONS (7)
  - ADRENAL INSUFFICIENCY [None]
  - CUSHING'S SYNDROME [None]
  - DRUG INTERACTION [None]
  - FACE OEDEMA [None]
  - IRRITABILITY [None]
  - LIPOHYPERTROPHY [None]
  - WEIGHT INCREASED [None]
